FAERS Safety Report 9446686 (Version 3)
Quarter: 2013Q4

REPORT INFORMATION
  Report Type: Spontaneous
  Country: US (occurrence: US)
  Receive Date: 20130807
  Receipt Date: 20131127
  Transmission Date: 20140711
  Serious: Yes (Other)
  Sender: FDA-Public Use
  Company Number: US-AMGEN-USASP2013051928

PATIENT
  Age: 65 Year
  Sex: Female
  Weight: 83.9 kg

DRUGS (15)
  1. ENBREL [Suspect]
     Indication: PSORIATIC ARTHROPATHY
     Dosage: 50 MG, QWK
     Route: 058
     Dates: start: 20130409
  2. ENBREL [Suspect]
     Indication: PSORIASIS
     Dosage: UNK
     Route: 065
  3. ENBREL [Suspect]
     Indication: PUSTULAR PSORIASIS
  4. CELEBREX [Concomitant]
     Dosage: 100 MG, UNK
  5. ZOLPIDEM [Concomitant]
     Dosage: 10 MG, UNK
  6. METHOTREXATE [Concomitant]
     Dosage: 8 TABLETS / 20 MG WEEKLY
     Route: 048
  7. TRAZODONE [Concomitant]
     Dosage: 50 MG, UNK
  8. METOPROLOL TARTRATE [Concomitant]
     Dosage: 100 MG, UNK
  9. ACYCLOVIR                          /00587301/ [Concomitant]
     Dosage: 200 MG, UNK
  10. IMITREX                            /01044801/ [Concomitant]
     Dosage: 25 MG, UNK
  11. VITAMIN B-12 [Concomitant]
     Dosage: 500 MUG, UNK
  12. PRILOSEC                           /00661201/ [Concomitant]
     Dosage: 10 MG, UNK
  13. MECLIZINE                          /00072801/ [Concomitant]
     Dosage: 12.5 MG, UNK
  14. FOLIC ACID [Concomitant]
     Dosage: UNK
  15. TACLONEX [Concomitant]
     Dosage: UNK

REACTIONS (14)
  - Squamous cell carcinoma [Unknown]
  - Tooth abscess [Recovered/Resolved]
  - Burning sensation [Not Recovered/Not Resolved]
  - Injection site extravasation [Unknown]
  - Toothache [Recovered/Resolved]
  - Tooth extraction [Recovered/Resolved]
  - Tooth injury [Not Recovered/Not Resolved]
  - Nail disorder [Not Recovered/Not Resolved]
  - Inflammation [Recovered/Resolved]
  - Condition aggravated [Recovered/Resolved]
  - Local swelling [Recovered/Resolved]
  - Pain [Recovered/Resolved]
  - Impaired healing [Not Recovered/Not Resolved]
  - Oral infection [Recovered/Resolved]
